FAERS Safety Report 10336272 (Version 1)
Quarter: 2014Q3

REPORT INFORMATION
  Report Type: Spontaneous
  Country: US (occurrence: US)
  Receive Date: 20140723
  Receipt Date: 20140723
  Transmission Date: 20150326
  Serious: No
  Sender: FDA-Public Use
  Company Number: US-BRISTOL-MYERS SQUIBB COMPANY-19964014

PATIENT
  Age: 72 Year
  Sex: Male
  Weight: 75.73 kg

DRUGS (2)
  1. COUMADIN [Suspect]
     Active Substance: WARFARIN SODIUM
     Indication: ATRIAL FIBRILLATION
     Dosage: 1DF=5MG 6 NIGHTS A WK AND 2.5MG ONE NIGHT A WK
  2. ALCOHOL. [Suspect]
     Active Substance: ALCOHOL

REACTIONS (1)
  - International normalised ratio abnormal [Unknown]
